FAERS Safety Report 8672945 (Version 2)
Quarter: 2012Q4

REPORT INFORMATION
  Report Type: 
  Country: CH (occurrence: JP)
  Receive Date: 20120719
  Receipt Date: 20121001
  Transmission Date: 20130627
  Serious: Yes (Hospitalization)
  Sender: FDA-Public Use
  Company Number: JP-BAYER-2012-071397

PATIENT
  Age: 9 Year
  Sex: Female
  Weight: 36 kg

DRUGS (8)
  1. NAPROXEN SODIUM ({= 220 MG) [Suspect]
     Indication: JUVENILE ARTHRITIS
     Dosage: UNK
     Route: 048
     Dates: start: 20051019, end: 20110401
  2. TOCILIZUMAB [Suspect]
     Indication: JUVENILE ARTHRITIS
     Dosage: 200 mg, UNK
     Route: 042
     Dates: start: 20110218, end: 20110311
  3. TOCILIZUMAB [Suspect]
     Indication: JUVENILE ARTHRITIS
     Dosage: 216 mg, UNK
     Route: 042
     Dates: start: 20110401, end: 20110810
  4. TOCILIZUMAB [Suspect]
     Indication: JUVENILE ARTHRITIS
     Dosage: 224 mg, UNK
     Route: 042
     Dates: start: 20110909, end: 20110909
  5. TOCILIZUMAB [Suspect]
     Indication: JUVENILE ARTHRITIS
     Dosage: 248 mg, UNK
     Route: 042
     Dates: start: 20111018, end: 20111018
  6. TOCILIZUMAB [Suspect]
     Indication: JUVENILE ARTHRITIS
     Dosage: 256 mg, UNK
     Route: 042
     Dates: start: 20111111, end: 20111209
  7. TOCILIZUMAB [Suspect]
     Indication: JUVENILE ARTHRITIS
     Dosage: 280 mg, UNK
     Route: 042
     Dates: start: 20120111
  8. METHOTREXATE [Suspect]
     Indication: JUVENILE ARTHRITIS
     Dosage: UNK
     Route: 048
     Dates: start: 20070520, end: 20110810

REACTIONS (3)
  - Appendicitis [Recovered/Resolved]
  - Hepatic function abnormal [None]
  - Hepatic function abnormal [None]
